FAERS Safety Report 6245595-0 (Version None)
Quarter: 2009Q2

REPORT INFORMATION
  Report Type: 
  Country: None (occurrence: None)
  Receive Date: 20090619
  Receipt Date: 20090518
  Transmission Date: 20091009
  Serious: No
  Sender: FDA-Public Use
  Company Number: ALL1-2009-01399

PATIENT
  Age: 19 Year
  Sex: Male
  Weight: 63.5 kg

DRUGS (1)
  1. VYVANSE [Suspect]
     Dosage: 40 MG, ONE DOSE GIVEN TWO 20 MG CAPSULE, ORAL
     Route: 048

REACTIONS (3)
  - CRIME [None]
  - DRUG DIVERSION [None]
  - IMPRISONMENT [None]
